FAERS Safety Report 20242812 (Version 2)
Quarter: 2022Q1

REPORT INFORMATION
  Report Type: Spontaneous
  Country: US (occurrence: None)
  Receive Date: 20211228
  Receipt Date: 20220111
  Transmission Date: 20220423
  Serious: No
  Sender: FDA-Public Use
  Company Number: 2021A872652

PATIENT
  Sex: Female

DRUGS (1)
  1. BUDESONIDE\FORMOTEROL\GLYCOPYRRONIUM [Suspect]
     Active Substance: BUDESONIDE\FORMOTEROL\GLYCOPYRRONIUM
     Indication: Chronic obstructive pulmonary disease
     Dosage: 120 ACTUATIONS INHALER (2 PUFFS , TWICE A DAY)
     Route: 055
     Dates: start: 202107

REACTIONS (3)
  - Confusional state [Unknown]
  - Product dose omission issue [Unknown]
  - Device ineffective [Unknown]
